FAERS Safety Report 6708621-8 (Version None)
Quarter: 2010Q2

REPORT INFORMATION
  Report Type: 
  Country: None (occurrence: None)
  Receive Date: 20100503
  Receipt Date: 20100421
  Transmission Date: 20101027
  Serious: Yes (Hospitalization)
  Sender: FDA-Public Use
  Company Number: US-ELI_LILLY_AND_COMPANY-US201004006262

PATIENT
  Sex: Male

DRUGS (8)
  1. CYMBALTA [Suspect]
     Indication: DEPRESSION
     Dosage: 60 MG, DAILY (1/D)
     Dates: start: 20100201
  2. KEPRA [Concomitant]
  3. PROMETHAZINE [Concomitant]
  4. NORTRIPTYLINE HCL [Concomitant]
  5. PROCHLORPERAZINE [Concomitant]
  6. OXYCODONE [Concomitant]
  7. VITAMIN B-12 [Concomitant]
  8. PREVACID [Concomitant]

REACTIONS (3)
  - GASTROINTESTINAL TUBE INSERTION [None]
  - IMPAIRED GASTRIC EMPTYING [None]
  - INTENTIONAL DRUG MISUSE [None]
